FAERS Safety Report 7464338-6 (Version None)
Quarter: 2011Q2

REPORT INFORMATION
  Report Type: 
  Country: None (occurrence: None)
  Receive Date: 20110509
  Receipt Date: 20110427
  Transmission Date: 20111010
  Serious: Yes (Hospitalization)
  Sender: FDA-Public Use
  Company Number: US-BIOGENIDEC-2011BI015034

PATIENT
  Age: 27 Year
  Sex: Female

DRUGS (3)
  1. TYSABRI [Suspect]
     Route: 042
     Dates: start: 20110427
  2. TYSABRI [Suspect]
     Indication: MULTIPLE SCLEROSIS
     Route: 042
     Dates: start: 20081230
  3. TYSABRI [Suspect]
     Route: 042
     Dates: start: 20080424, end: 20080916

REACTIONS (4)
  - HEADACHE [None]
  - POOR VENOUS ACCESS [None]
  - VOMITING [None]
  - MULTIPLE SCLEROSIS RELAPSE [None]
